FAERS Safety Report 15030199 (Version 2)
Quarter: 2018Q3

REPORT INFORMATION
  Report Type: Spontaneous
  Country: DE (occurrence: DE)
  Receive Date: 20180619
  Receipt Date: 20180810
  Transmission Date: 20181010
  Serious: Yes (Other)
  Sender: FDA-Public Use
  Company Number: DE-PFIZER INC-2018242202

PATIENT
  Age: 38 Year
  Sex: Female
  Weight: 72 kg

DRUGS (4)
  1. CHAMPIX [Suspect]
     Active Substance: VARENICLINE TARTRATE
     Indication: SMOKING CESSATION THERAPY
     Dosage: 0.5 MG 2X/DAY, 1 TABLET IN THE MORNING AND IN THE EVENING
     Dates: start: 20180326, end: 20180604
  2. CHAMPIX [Suspect]
     Active Substance: VARENICLINE TARTRATE
     Dosage: 1 MG, 2X/DAY (1 TABLET IN THE MORNING AND IN THE EVENING)
     Dates: start: 20180326, end: 20180604
  3. OMEPRAZOL [Concomitant]
     Active Substance: OMEPRAZOLE
     Dosage: 1 DF, UNK
  4. YASMIN [Concomitant]
     Active Substance: DROSPIRENONE\ETHINYL ESTRADIOL
     Indication: ORAL CONTRACEPTION
     Dosage: 0.03/3MG

REACTIONS (6)
  - Tachycardia [Unknown]
  - Cholestasis [Unknown]
  - Vertigo [Unknown]
  - Headache [Unknown]
  - Nightmare [Unknown]
  - Laboratory test abnormal [Recovered/Resolved]

NARRATIVE: CASE EVENT DATE: 20180517
